FAERS Safety Report 8973318 (Version 1)
Quarter: 2012Q4

REPORT INFORMATION
  Report Type: 
  Country: US (occurrence: US)
  Receive Date: 20121218
  Receipt Date: 20121218
  Transmission Date: 20130627
  Serious: No
  Sender: FDA-Public Use
  Company Number: US-TEVA-376293USA

PATIENT
  Sex: Female

DRUGS (2)
  1. NUVIGIL [Suspect]
     Indication: NARCOLEPSY
  2. ADDERALL [Suspect]

REACTIONS (4)
  - Drug ineffective [Unknown]
  - Nervousness [Unknown]
  - Feeling jittery [Unknown]
  - Feeling abnormal [Unknown]
